FAERS Safety Report 9642765 (Version 3)
Quarter: 2013Q4

REPORT INFORMATION
  Report Type: Report from Study
  Country: US (occurrence: US)
  Receive Date: 20131024
  Receipt Date: 20131111
  Transmission Date: 20140711
  Serious: Yes (Hospitalization)
  Sender: FDA-Public Use
  Company Number: US-JNJFOC-20131011924

PATIENT
  Age: 58 Year
  Sex: Male
  Weight: 107.05 kg

DRUGS (13)
  1. USTEKINUMAB [Suspect]
     Indication: PSORIASIS
     Route: 058
     Dates: start: 201003
  2. USTEKINUMAB [Suspect]
     Indication: PSORIASIS
     Route: 058
     Dates: start: 20130430, end: 20130430
  3. VITAMIN D [Concomitant]
     Route: 061
  4. LANTUS [Concomitant]
     Dosage: 100 UNIT/ML: INJECT 35 UNITS INTO THE SKIN ONCE EVERY NIGHT AT BEDTIME.
     Route: 058
  5. LOFIBRA [Concomitant]
     Dosage: ONCE EVERY EVENING
     Route: 048
  6. LASIX [Concomitant]
     Route: 048
  7. APRESOLINE [Concomitant]
     Route: 048
  8. MEVACOR [Concomitant]
     Dosage: ONCE EVERY EVENING
     Route: 048
  9. ZEMPLAR [Concomitant]
     Dosage: TUESDAY- THURSDAY -SATURDAY -SUNDAY
     Route: 048
  10. ZEMPLAR [Concomitant]
     Dosage: MONDAY- WEDNESDAY- FRIDAY.
     Route: 048
  11. LOPRESSOR [Concomitant]
     Route: 048
  12. NORVASC [Concomitant]
     Route: 048
  13. EPOETIN ALFA [Concomitant]
     Route: 065

REACTIONS (1)
  - Hydrocephalus [Recovered/Resolved]
